FAERS Safety Report 12879667 (Version 1)
Quarter: 2016Q4

REPORT INFORMATION
  Report Type: Spontaneous
  Country: US (occurrence: US)
  Receive Date: 20161021
  Receipt Date: 20161021
  Transmission Date: 20170207
  Serious: Yes (Hospitalization)
  Sender: FDA-Public Use
  Company Number: None

PATIENT
  Age: 65 Year
  Sex: Male
  Weight: 78.1 kg

DRUGS (1)
  1. METHADONE [Suspect]
     Active Substance: METHADONE HYDROCHLORIDE
     Indication: DRUG DEPENDENCE
     Route: 048
     Dates: start: 20160921, end: 20160927

REACTIONS (8)
  - Agitation [None]
  - Anger [None]
  - Respiratory depression [None]
  - Overdose [None]
  - Toxicity to various agents [None]
  - Sedation [None]
  - Toxicologic test abnormal [None]
  - Disorientation [None]

NARRATIVE: CASE EVENT DATE: 20160927
